FAERS Safety Report 9528259 (Version 2)
Quarter: 2014Q1

REPORT INFORMATION
  Report Type: Report from Study
  Country: DE (occurrence: DE)
  Receive Date: 20130917
  Receipt Date: 20140108
  Transmission Date: 20141002
  Serious: Yes (Other)
  Sender: FDA-Public Use
  Company Number: PHHY2013DE102171

PATIENT
  Sex: Female

DRUGS (6)
  1. AMN107 [Suspect]
     Indication: CHRONIC MYELOID LEUKAEMIA
     Dosage: 600 MG/DAY
     Route: 048
     Dates: start: 20120623, end: 20130611
  2. AMN107 [Suspect]
     Dosage: 600 MG/DAY
     Dates: start: 20130617
  3. L-THYROXIN [Concomitant]
     Indication: HYPOTHYROIDISM
     Dosage: 75 UG/DAY
  4. AMLODIPINE [Concomitant]
     Indication: HYPERTENSION
     Dosage: 5 MG/DAY
  5. PANTOZOL [Concomitant]
     Indication: PROPHYLAXIS
     Dosage: 20 MG/DAY
  6. LOPERAMIDE [Concomitant]
     Indication: DIARRHOEA
     Dosage: 2 DF, UNK

REACTIONS (1)
  - Type 2 diabetes mellitus [Not Recovered/Not Resolved]
